FAERS Safety Report 5008291-3 (Version None)
Quarter: 2006Q2

REPORT INFORMATION
  Report Type: 
  Country: None (occurrence: None)
  Receive Date: 20060523
  Receipt Date: 20060404
  Transmission Date: 20061013
  Serious: Yes (Other)
  Sender: FDA-Public Use
  Company Number: ES-AMGEN-UK175299

PATIENT
  Sex: Male
  Weight: 81 kg

DRUGS (3)
  1. ARANESP [Suspect]
     Indication: MYELODYSPLASTIC SYNDROME
     Route: 058
     Dates: start: 20060126, end: 20060223
  2. DESFERIN [Concomitant]
  3. ACFOL [Concomitant]

REACTIONS (4)
  - HEADACHE [None]
  - NAUSEA [None]
  - THERAPY NON-RESPONDER [None]
  - VOMITING [None]
